FAERS Safety Report 17153079 (Version 1)
Quarter: 2019Q4

REPORT INFORMATION
  Report Type: Report from Study
  Country: ES (occurrence: ES)
  Receive Date: 20191213
  Receipt Date: 20191213
  Transmission Date: 20200122
  Serious: Yes (Other)
  Sender: FDA-Public Use
  Company Number: ES-ASTRAZENECA-2019SF80603

PATIENT
  Age: 52 Year
  Sex: Male

DRUGS (2)
  1. QUETIAPINE. [Suspect]
     Active Substance: QUETIAPINE
     Route: 048
  2. LITHIUM. [Suspect]
     Active Substance: LITHIUM
     Route: 065

REACTIONS (1)
  - Long QT syndrome [Unknown]
